FAERS Safety Report 10936122 (Version 4)
Quarter: 2015Q2

REPORT INFORMATION
  Report Type: Spontaneous
  Country: BR (occurrence: BR)
  Receive Date: 20150320
  Receipt Date: 20150430
  Transmission Date: 20150821
  Serious: Yes (Death, Other)
  Sender: FDA-Public Use
  Company Number: BR-PFIZER INC-2015097186

PATIENT
  Age: 93 Year
  Sex: Female
  Weight: 60 kg

DRUGS (7)
  1. RISPERIDONE. [Concomitant]
     Active Substance: RISPERIDONE
     Dosage: UNK
     Dates: start: 201401
  2. CEBRALAT [Concomitant]
     Active Substance: CILOSTAZOL
     Indication: PERIPHERAL VASCULAR DISORDER
     Dosage: 1 DF, DAILY
     Dates: start: 2005
  3. VASOGARD [Concomitant]
     Active Substance: CILOSTAZOL
     Indication: PERIPHERAL VASCULAR DISORDER
     Dosage: UNK
     Dates: start: 2005
  4. LIPITOR [Suspect]
     Active Substance: ATORVASTATIN CALCIUM
     Indication: VENOUS OCCLUSION
     Dosage: 10 MG, DAILY
     Route: 048
     Dates: start: 201212
  5. LIPITOR [Suspect]
     Active Substance: ATORVASTATIN CALCIUM
     Indication: ARTERIAL OCCLUSIVE DISEASE
  6. VENALOT - SLOW RELEASE [Concomitant]
     Indication: PERIPHERAL VASCULAR DISORDER
     Dosage: 1 DF, DAILY
     Dates: start: 2005
  7. CYMBALTA [Concomitant]
     Active Substance: DULOXETINE HYDROCHLORIDE
     Indication: DEPRESSION
     Dosage: UNK
     Dates: start: 2011

REACTIONS (4)
  - Cerebrovascular accident [Fatal]
  - Pulmonary embolism [Fatal]
  - Respiratory failure [Fatal]
  - Syncope [Unknown]

NARRATIVE: CASE EVENT DATE: 20150313
